FAERS Safety Report 26171118 (Version 1)
Quarter: 2025Q4

REPORT INFORMATION
  Report Type: Spontaneous
  Country: US (occurrence: US)
  Receive Date: 20251217
  Receipt Date: 20251217
  Transmission Date: 20260117
  Serious: No
  Sender: SANOFI AVENTIS
  Company Number: US-SA-2025SA373355

PATIENT
  Age: 58 Year
  Sex: Male

DRUGS (2)
  1. DUPIXENT [Suspect]
     Active Substance: DUPILUMAB
     Indication: Dermatitis atopic
     Dosage: 300 MG, QOW
     Route: 058
  2. TIRZEPATIDE [Concomitant]
     Active Substance: TIRZEPATIDE
     Dosage: UNK
     Route: 065

REACTIONS (3)
  - Chills [Unknown]
  - Weight increased [Unknown]
  - Injection site pain [Unknown]
